FAERS Safety Report 12608560 (Version 9)
Quarter: 2020Q1

REPORT INFORMATION
  Report Type: Spontaneous
  Country: JP (occurrence: JP)
  Receive Date: 20160729
  Receipt Date: 20200303
  Transmission Date: 20200409
  Serious: Yes (Hospitalization, Other)
  Sender: FDA-Public Use
  Company Number: JP-BRISTOL-MYERS SQUIBB COMPANY-BMS-2016-062112

PATIENT
  Age: 81 Year
  Sex: Male

DRUGS (2)
  1. MONTELUKAST SODIUM. [Concomitant]
     Active Substance: MONTELUKAST SODIUM
     Indication: ASTHMA
     Dosage: UNK
     Route: 065
  2. OPDIVO [Suspect]
     Active Substance: NIVOLUMAB
     Indication: NON-SMALL CELL LUNG CANCER RECURRENT
     Dosage: 3 MILLIGRAM/KILOGRAM, Q2WK
     Route: 041
     Dates: start: 20160325

REACTIONS (9)
  - Pneumonia aspiration [Unknown]
  - Antisynthetase syndrome [Unknown]
  - Cytomegalovirus infection [Unknown]
  - Polymyositis [Recovering/Resolving]
  - Interstitial lung disease [Recovering/Resolving]
  - Aspergillus infection [Unknown]
  - Candida infection [Unknown]
  - Rash [Unknown]
  - Oesophageal candidiasis [Unknown]

NARRATIVE: CASE EVENT DATE: 2016
